FAERS Safety Report 8804019 (Version 1)
Quarter: 2012Q4

REPORT INFORMATION
  Report Type: 
  Country: US (occurrence: US)
  Receive Date: 20120924
  Receipt Date: 20120924
  Transmission Date: 20130627
  Serious: Yes (Other)
  Sender: FDA-Public Use
  Company Number: US-GLAXOSMITHKLINE-A0994275A

PATIENT
  Sex: Male

DRUGS (1)
  1. PAXIL [Suspect]
     Indication: DEPRESSION
     Route: 048
     Dates: start: 20110301, end: 20120124

REACTIONS (28)
  - Aggression [Unknown]
  - Hallucination [Unknown]
  - Asthenia [Unknown]
  - Anxiety [Unknown]
  - Nervousness [Unknown]
  - Agitation [Unknown]
  - Insomnia [Unknown]
  - Confusional state [Unknown]
  - Dyspnoea [Unknown]
  - Confusional state [Unknown]
  - Dyspnoea [Unknown]
  - Syncope [Unknown]
  - Memory impairment [Unknown]
  - Muscle spasms [Unknown]
  - Aggression [Unknown]
  - Aggression [Unknown]
  - Withdrawal syndrome [Unknown]
  - Insomnia [Unknown]
  - Influenza like illness [Unknown]
  - Pain [Unknown]
  - Hyperhidrosis [Unknown]
  - Confusional state [Unknown]
  - Tremor [Unknown]
  - Somnolence [Unknown]
  - Asthenia [Unknown]
  - Syncope [Unknown]
  - Drug dependence [Unknown]
  - Anxiety [Unknown]
